FAERS Safety Report 13417001 (Version 1)
Quarter: 2017Q2

REPORT INFORMATION
  Report Type: Spontaneous
  Country: US (occurrence: US)
  Receive Date: 20170406
  Receipt Date: 20170406
  Transmission Date: 20170830
  Serious: No
  Sender: FDA-Public Use
  Company Number: US-SHIRE-US201707606

PATIENT
  Sex: Female

DRUGS (2)
  1. LIALDA [Suspect]
     Active Substance: MESALAMINE
     Indication: LARGE INTESTINAL HAEMORRHAGE
     Dosage: 4.8 G, 1X/DAY:QD
     Route: 048
     Dates: start: 201610
  2. WELCHOL [Concomitant]
     Active Substance: COLESEVELAM HYDROCHLORIDE
     Indication: BLOOD CHOLESTEROL INCREASED
     Dosage: 625 MG, 1X/DAY:QD
     Route: 065

REACTIONS (3)
  - Therapeutic response unexpected [Unknown]
  - Energy increased [Unknown]
  - Hypoacusis [Unknown]
